FAERS Safety Report 4910743-9 (Version None)
Quarter: 2006Q1

REPORT INFORMATION
  Report Type: 
  Country: None (occurrence: None)
  Receive Date: 20060214
  Receipt Date: 20060210
  Transmission Date: 20060701
  Serious: Yes (Death, Hospitalization)
  Sender: FDA-Public Use
  Company Number: ES-BRISTOL-MYERS SQUIBB COMPANY-13278189

PATIENT
  Age: 69 Year
  Sex: Male
  Weight: 65 kg

DRUGS (7)
  1. CISPLATIN [Suspect]
     Indication: NON-SMALL CELL LUNG CANCER
     Route: 042
     Dates: start: 20050920, end: 20051014
  2. GEMCITABINE [Suspect]
     Indication: NON-SMALL CELL LUNG CANCER
     Route: 042
     Dates: start: 20050920, end: 20051014
  3. OMEPRAZOLE [Concomitant]
     Indication: GASTRIC ULCER
  4. PREDNISONE [Concomitant]
  5. ACETAMINOPHEN [Concomitant]
     Indication: ANALGESIC THERAPY
  6. CODEINE [Concomitant]
  7. FOLIC ACID [Concomitant]
     Dates: start: 20050920

REACTIONS (1)
  - LIVER DISORDER [None]
